FAERS Safety Report 5679597-X (Version None)
Quarter: 2008Q1

REPORT INFORMATION
  Report Type: 
  Country: None (occurrence: None)
  Receive Date: 20080324
  Receipt Date: 20080313
  Transmission Date: 20080703
  Serious: Yes (Death)
  Sender: FDA-Public Use
  Company Number: 20073500

PATIENT
  Age: 49 Year
  Sex: Female

DRUGS (2)
  1. LIORESAL [Suspect]
     Indication: MUSCLE SPASTICITY
     Dosage: 300 MCG, DAILY, INTRATHECAL
     Route: 037
  2. OPIOID ANALGESIC [Concomitant]

REACTIONS (13)
  - ALTERED STATE OF CONSCIOUSNESS [None]
  - ASPIRATION [None]
  - CACHEXIA [None]
  - COUGH DECREASED [None]
  - DECUBITUS ULCER [None]
  - DYSPHAGIA [None]
  - DYSPNOEA [None]
  - EPILEPSY [None]
  - IMPAIRED HEALING [None]
  - LUNG DISORDER [None]
  - PAIN [None]
  - RESPIRATORY FAILURE [None]
  - TREMOR [None]
